FAERS Safety Report 4801597-X (Version None)
Quarter: 2005Q4

REPORT INFORMATION
  Report Type: 
  Country: None (occurrence: None)
  Receive Date: 20051011
  Receipt Date: 20050930
  Transmission Date: 20060501
  Serious: Yes (Hospitalization, Other)
  Sender: FDA-Public Use
  Company Number: HQWYE545220SEP05

PATIENT
  Age: 76 Year
  Sex: Female
  Weight: 59.3 kg

DRUGS (5)
  1. MYLOTARG [Suspect]
     Indication: ACUTE MYELOID LEUKAEMIA
     Dosage: 10 MG 1X PER 1 DAY, INTRAVENOUS
     Route: 042
     Dates: start: 20050909, end: 20050909
  2. CYTARABINE [Suspect]
     Indication: ACUTE MYELOID LEUKAEMIA
     Dosage: 3.36 G 2X PER 1 DAY; 3.36 G 2X PER 1 DAY
     Dates: start: 20050910, end: 20050910
  3. CYTARABINE [Suspect]
     Indication: ACUTE MYELOID LEUKAEMIA
     Dosage: 3.36 G 2X PER 1 DAY; 3.36 G 2X PER 1 DAY
     Dates: start: 20050915, end: 20050915
  4. MITOXANTRONE [Suspect]
     Indication: ACUTE MYELOID LEUKAEMIA
     Dosage: 50.4 MG 1X PER 1 DAY; 50.4 MG 1X PER 1 DAY
     Dates: start: 20050910, end: 20050910
  5. MITOXANTRONE [Suspect]
     Indication: ACUTE MYELOID LEUKAEMIA
     Dosage: 50.4 MG 1X PER 1 DAY; 50.4 MG 1X PER 1 DAY
     Dates: start: 20050915, end: 20050915

REACTIONS (9)
  - ASTHENIA [None]
  - CHILLS [None]
  - DECREASED APPETITE [None]
  - DIZZINESS [None]
  - FATIGUE [None]
  - FEBRILE NEUTROPENIA [None]
  - INFUSION RELATED REACTION [None]
  - LEUKAEMIA RECURRENT [None]
  - PANCYTOPENIA [None]
